FAERS Safety Report 19972171 (Version 2)
Quarter: 2021Q4

REPORT INFORMATION
  Report Type: Spontaneous
  Country: US (occurrence: US)
  Receive Date: 20211020
  Receipt Date: 20211108
  Transmission Date: 20220303
  Serious: No
  Sender: FDA-Public Use
  Company Number: US-JNJFOC-20210943335

PATIENT
  Age: 45 Year
  Sex: Female

DRUGS (2)
  1. PONVORY [Suspect]
     Active Substance: PONESIMOD
     Indication: Multiple sclerosis
     Route: 048
     Dates: start: 20210919
  2. PONVORY [Suspect]
     Active Substance: PONESIMOD
     Route: 048
     Dates: end: 20211027

REACTIONS (1)
  - Therapy interrupted [Unknown]
